FAERS Safety Report 21969704 (Version 3)
Quarter: 2023Q1

REPORT INFORMATION
  Report Type: Spontaneous
  Country: AR (occurrence: AR)
  Receive Date: 20230208
  Receipt Date: 20230226
  Transmission Date: 20230417
  Serious: Yes (Death, Hospitalization, Other)
  Sender: FDA-Public Use
  Company Number: AR-TAKEDA-2023TUS013087

PATIENT
  Age: 22 Year
  Sex: Female
  Weight: 130 kg

DRUGS (1)
  1. ADCETRIS [Suspect]
     Active Substance: BRENTUXIMAB VEDOTIN
     Indication: Hodgkin^s disease
     Dosage: UNK
     Route: 065
     Dates: start: 20230116

REACTIONS (15)
  - Multiple organ dysfunction syndrome [Fatal]
  - Asthenia [Unknown]
  - Alanine aminotransferase increased [Unknown]
  - Aspartate aminotransferase increased [Unknown]
  - Nausea [Unknown]
  - Diarrhoea [Unknown]
  - Lactic acidosis [Unknown]
  - Shock [Unknown]
  - Anuria [Unknown]
  - Ketoacidosis [Unknown]
  - Metabolic acidosis [Unknown]
  - Dysuria [Unknown]
  - Hepatomegaly [Unknown]
  - Urinary tract infection [Unknown]
  - Abdominal pain [Unknown]

NARRATIVE: CASE EVENT DATE: 20230203
